FAERS Safety Report 22325787 (Version 1)
Quarter: 2023Q2

REPORT INFORMATION
  Report Type: Spontaneous
  Country: US (occurrence: US)
  Receive Date: 20230516
  Receipt Date: 20230516
  Transmission Date: 20230721
  Serious: No
  Sender: FDA-Public Use
  Company Number: US-ANIPHARMA-2023-US-006849

PATIENT
  Age: 51 Year
  Sex: Male

DRUGS (1)
  1. CORTICOTROPIN [Suspect]
     Active Substance: CORTICOTROPIN
     Indication: Multiple sclerosis
     Dosage: 1 ML INJECTION PER DAY
     Route: 058
     Dates: start: 20230318, end: 20230319

REACTIONS (7)
  - Erythema [Recovering/Resolving]
  - Ear discomfort [Recovering/Resolving]
  - Glassy eyes [Recovering/Resolving]
  - Peripheral swelling [Recovering/Resolving]
  - Periorbital swelling [Recovering/Resolving]
  - Asthenia [Not Recovered/Not Resolved]
  - Swelling face [Recovering/Resolving]

NARRATIVE: CASE EVENT DATE: 20230318
